FAERS Safety Report 16121689 (Version 1)
Quarter: 2019Q1

REPORT INFORMATION
  Report Type: Spontaneous
  Country: GB (occurrence: GB)
  Receive Date: 20190327
  Receipt Date: 20190327
  Transmission Date: 20190418
  Serious: Yes (Hospitalization, Disabling)
  Sender: FDA-Public Use
  Company Number: GB-ACCORD-115963

PATIENT
  Age: 84 Year
  Sex: Female
  Weight: 55 kg

DRUGS (9)
  1. FOLIC ACID. [Concomitant]
     Active Substance: FOLIC ACID
  2. ALENDRONATE SODIUM/ALENDRONIC ACID [Concomitant]
  3. RIVASTIGMINE/RIVASTIGMINE TARTRATE [Concomitant]
  4. SERTRALINE [Suspect]
     Active Substance: SERTRALINE HYDROCHLORIDE
     Indication: DEPRESSION
     Route: 048
     Dates: start: 20181129, end: 20181205
  5. TAZOCIN [Concomitant]
     Active Substance: PIPERACILLIN SODIUM\TAZOBACTAM SODIUM
     Indication: SEPSIS
  6. PARACETAMOL [Concomitant]
     Active Substance: ACETAMINOPHEN
  7. SERTRALINE [Suspect]
     Active Substance: SERTRALINE HYDROCHLORIDE
     Indication: DEPRESSION
     Dosage: ALSO TAKE 150 MG FROM 29-NOV-2018 TO 05-DEC-2018
     Route: 048
     Dates: end: 20181128
  8. ADCAL-D3 [Concomitant]
     Active Substance: CALCIUM CARBONATE\CHOLECALCIFEROL
  9. METHOTREXATE. [Concomitant]
     Active Substance: METHOTREXATE

REACTIONS (5)
  - Seizure [Recovered/Resolved]
  - Agitation [Unknown]
  - Tongue biting [Unknown]
  - Delirium [Unknown]
  - Anal incontinence [Unknown]

NARRATIVE: CASE EVENT DATE: 20181204
